FAERS Safety Report 8158131-9 (Version None)
Quarter: 2012Q1

REPORT INFORMATION
  Report Type: 
  Country: None (occurrence: None)
  Receive Date: 20120222
  Receipt Date: 20120219
  Transmission Date: 20120608
  Serious: Yes (Death, Other)
  Sender: FDA-Public Use
  Company Number: PHHY2012BR014561

PATIENT
  Age: 52 Year
  Sex: Male

DRUGS (4)
  1. CYCLOSPORINE [Concomitant]
  2. METHYLPREDNISOLONE [Concomitant]
  3. RIBAVIRIN [Suspect]
     Dosage: 10 MG/KG, Q6H
     Route: 048
  4. RIBAVIRIN [Suspect]
     Indication: ADENOVIRUS INFECTION
     Dosage: 20 MG/KG, Q6H
     Route: 048

REACTIONS (2)
  - ANAEMIA [None]
  - PSEUDOMONAS INFECTION [None]
